FAERS Safety Report 9431876 (Version 1)
Quarter: 2013Q3

REPORT INFORMATION
  Report Type: Spontaneous
  Country: US (occurrence: None)
  Receive Date: 20130726
  Receipt Date: 20130726
  Transmission Date: 20140515
  Serious: Yes (Life-Threatening, Hospitalization)
  Sender: FDA-Public Use
  Company Number: 54973 AE # 1445

PATIENT
  Age: 14 Year
  Sex: 0

DRUGS (2)
  1. HYLAND^S [Suspect]
     Indication: TENSION
     Dosage: 2 BOTTLES UNKNOWN  QTY
  2. TYLENOL [Suspect]
     Dosage: 1 BOTTLE UNKNOWN STRENGTH QTY

REACTIONS (2)
  - Mental status changes [None]
  - Incorrect dose administered [None]
